FAERS Safety Report 10280064 (Version 2)
Quarter: 2014Q3

REPORT INFORMATION
  Report Type: Spontaneous
  Country: CN (occurrence: CN)
  Receive Date: 20140707
  Receipt Date: 20140710
  Transmission Date: 20150326
  Serious: Yes (Hospitalization)
  Sender: FDA-Public Use
  Company Number: CN-009507513-1407CHN002281

PATIENT
  Age: 26 Year
  Sex: Female
  Weight: 46 kg

DRUGS (3)
  1. PEGINTRON [Suspect]
     Active Substance: PEGINTERFERON ALFA-2B
     Indication: HEPATITIS C
     Dosage: 80 MICROGRAM, QW
     Route: 058
     Dates: start: 20130516, end: 20131112
  2. PEGINTRON [Suspect]
     Active Substance: PEGINTERFERON ALFA-2B
     Dosage: 50 MICROGRAM, QW
     Route: 058
     Dates: start: 201311
  3. RIBAVIRIN. [Suspect]
     Active Substance: RIBAVIRIN
     Indication: ANTI-INFECTIVE THERAPY
     Dosage: 0.4 G, TWICE DAILY

REACTIONS (1)
  - Thyroxine increased [Unknown]

NARRATIVE: CASE EVENT DATE: 20131112
